FAERS Safety Report 6313585-5 (Version None)
Quarter: 2009Q3

REPORT INFORMATION
  Report Type: 
  Country: None (occurrence: None)
  Receive Date: 20090818
  Receipt Date: 20090807
  Transmission Date: 20100115
  Serious: Yes (Hospitalization)
  Sender: FDA-Public Use
  Company Number: SG-ROCHE-649487

PATIENT
  Age: 14 Year
  Sex: Female
  Weight: 44 kg

DRUGS (5)
  1. TAMIFLU [Suspect]
     Dosage: INDICATION REPORTED: H1N1 POSITIVE UPPER RESPIRATORY TRACT INFECTION.
     Route: 048
     Dates: start: 20090713, end: 20090718
  2. BROMHEXINE [Concomitant]
     Route: 048
  3. PARACETAMOL [Concomitant]
     Route: 048
  4. DEQUALINIUM CHLORIDE [Concomitant]
     Route: 048
  5. PROMETHAZINE [Concomitant]
     Route: 048

REACTIONS (2)
  - HEADACHE [None]
  - SUICIDAL IDEATION [None]
